FAERS Safety Report 8610934-X (Version None)
Quarter: 2012Q3

REPORT INFORMATION
  Report Type: 
  Country: None (occurrence: None)
  Receive Date: 20120822
  Receipt Date: 20120817
  Transmission Date: 20120928
  Serious: Yes (Other)
  Sender: FDA-Public Use
  Company Number: PHEH2012US016285

PATIENT
  Sex: Female

DRUGS (6)
  1. SIMVASTATIN [Concomitant]
     Dosage: 20 MG, UNK
  2. LISINOPRIL [Concomitant]
     Dosage: 200 MG, UNK
  3. FLECAINIDE ACETATE [Concomitant]
     Dosage: 150 MG, UNK
  4. VALTURNA [Suspect]
     Dosage: 1 DF (300/320MG), UNK
  5. METOPROLOL TARTRATE [Concomitant]
     Dosage: 100 MG, UNK
  6. DABIGATRAN [Concomitant]
     Dosage: 150 MG, UNK

REACTIONS (4)
  - INCONTINENCE [None]
  - RENAL DISORDER [None]
  - HEART RATE INCREASED [None]
  - CEREBROVASCULAR ACCIDENT [None]
